FAERS Safety Report 10896672 (Version 1)
Quarter: 2015Q1

REPORT INFORMATION
  Report Type: Spontaneous
  Country: BR (occurrence: BR)
  Receive Date: 20150309
  Receipt Date: 20150309
  Transmission Date: 20150721
  Serious: Yes (Other)
  Sender: FDA-Public Use
  Company Number: BR-JNJFOC-20150300383

PATIENT
  Age: 59 Year
  Sex: Female
  Weight: 62 kg

DRUGS (8)
  1. ARAVA [Concomitant]
     Active Substance: LEFLUNOMIDE
     Indication: RHEUMATOID ARTHRITIS
     Route: 065
  2. VYTORIN [Concomitant]
     Active Substance: EZETIMIBE\SIMVASTATIN
     Indication: BLOOD CHOLESTEROL ABNORMAL
     Route: 065
  3. VITAMIN C [Concomitant]
     Active Substance: ASCORBIC ACID
     Indication: VITAMIN SUPPLEMENTATION
     Route: 065
  4. DEFLANIL [Concomitant]
     Indication: RHEUMATOID ARTHRITIS
     Route: 065
  5. OSCAL+VITAMIN D [Concomitant]
     Indication: VITAMIN SUPPLEMENTATION
     Route: 065
  6. CHOLECALCIFEROL [Concomitant]
     Active Substance: CHOLECALCIFEROL
     Indication: VITAMIN SUPPLEMENTATION
     Route: 065
  7. SIMPONI [Suspect]
     Active Substance: GOLIMUMAB
     Indication: RHEUMATOID ARTHRITIS
     Route: 058
     Dates: start: 201406, end: 20150227
  8. PURAN T-4 [Concomitant]
     Indication: THYROID DISORDER
     Route: 065

REACTIONS (9)
  - Dental operation [Not Recovered/Not Resolved]
  - Toothache [Not Recovered/Not Resolved]
  - Pulpitis dental [Not Recovered/Not Resolved]
  - Swelling face [Not Recovered/Not Resolved]
  - Endometrial disorder [Unknown]
  - Inflammation [Not Recovered/Not Resolved]
  - Facial pain [Not Recovered/Not Resolved]
  - Endodontic procedure [Not Recovered/Not Resolved]
  - Cough [Not Recovered/Not Resolved]

NARRATIVE: CASE EVENT DATE: 201410
